FAERS Safety Report 4303266-1 (Version None)
Quarter: 2004Q1

REPORT INFORMATION
  Report Type: 
  Country: None (occurrence: None)
  Receive Date: 20040223
  Receipt Date: 20040212
  Transmission Date: 20041129
  Serious: Yes (Hospitalization)
  Sender: FDA-Public Use
  Company Number: 2004AP00831

PATIENT
  Age: 54 Year
  Sex: Male

DRUGS (4)
  1. IRESSA [Suspect]
     Indication: BRONCHIOLOALVEOLAR CARCINOMA
     Dosage: 250 MG DAILY PO
     Route: 048
     Dates: start: 20031111, end: 20031119
  2. IRESSA [Suspect]
     Indication: NON-SMALL CELL LUNG CANCER
     Dosage: 250 MG DAILY PO
     Route: 048
     Dates: start: 20031111, end: 20031119
  3. AMINOFLUID [Concomitant]
  4. MUCOSTA [Concomitant]

REACTIONS (2)
  - CYSTITIS HAEMORRHAGIC [None]
  - STOMATITIS [None]
